FAERS Safety Report 7324120-7 (Version None)
Quarter: 2011Q1

REPORT INFORMATION
  Report Type: 
  Country: None (occurrence: None)
  Receive Date: 20110217
  Receipt Date: 20101203
  Transmission Date: 20110831
  Serious: Yes (Death, Hospitalization)
  Sender: FDA-Public Use
  Company Number: 2011000709

PATIENT
  Age: 64 Year
  Sex: Male

DRUGS (2)
  1. BEVACIZUMAB (TABLET) [Suspect]
     Indication: METASTATIC RENAL CELL CARCINOMA
     Dosage: (10 MG/KG, EVERY TWO WEEKS), ORAL
     Route: 048
  2. ERLOTINIB HYDROCHLORIDE [Suspect]
     Indication: METASTATIC RENAL CELL CARCINOMA
     Dosage: (150 MG, QD), ORAL
     Route: 048

REACTIONS (14)
  - LYMPHOCYTE PERCENTAGE DECREASED [None]
  - ALANINE AMINOTRANSFERASE INCREASED [None]
  - GLOBULINS INCREASED [None]
  - NEOPLASM MALIGNANT [None]
  - BLOOD CHLORIDE DECREASED [None]
  - RENAL CELL CARCINOMA [None]
  - GRANULOCYTE COUNT INCREASED [None]
  - HYPONATRAEMIA [None]
  - WHITE BLOOD CELL COUNT INCREASED [None]
  - ALBUMIN GLOBULIN RATIO DECREASED [None]
  - BLOOD ALBUMIN DECREASED [None]
  - ASPARTATE AMINOTRANSFERASE INCREASED [None]
  - MONOCYTE PERCENTAGE DECREASED [None]
  - BLOOD ALKALINE PHOSPHATASE INCREASED [None]
